FAERS Safety Report 18174949 (Version 2)
Quarter: 2020Q3

REPORT INFORMATION
  Report Type: Spontaneous
  Country: CO (occurrence: CO)
  Receive Date: 20200820
  Receipt Date: 20200903
  Transmission Date: 20201103
  Serious: Yes (Hospitalization, Other)
  Sender: FDA-Public Use
  Company Number: CO-STRIDES ARCOLAB LIMITED-2020SP009464

PATIENT
  Age: 3 Month
  Sex: Male
  Weight: 3.24 kg

DRUGS (7)
  1. MILRINONE [Concomitant]
     Active Substance: MILRINONE
     Indication: CARDIAC FAILURE
     Dosage: UNK
     Route: 065
     Dates: start: 2018
  2. MEROPENEM. [Suspect]
     Active Substance: MEROPENEM
     Indication: ANTIBIOTIC PROPHYLAXIS
     Dosage: UNK
     Route: 065
     Dates: start: 2018
  3. VANCOMYCIN [Suspect]
     Active Substance: VANCOMYCIN
     Indication: ANTIBIOTIC PROPHYLAXIS
     Dosage: UNK
     Route: 065
     Dates: start: 2018
  4. CASPOFUNGIN [Suspect]
     Active Substance: CASPOFUNGIN
     Indication: ANTIFUNGAL TREATMENT
     Dosage: UNK
     Route: 065
     Dates: start: 2018
  5. FUROSEMIDE. [Concomitant]
     Active Substance: FUROSEMIDE
     Indication: PRODUCT USED FOR UNKNOWN INDICATION
     Dosage: 3 MILLIGRAM, EVERY 12 HRS
     Route: 065
     Dates: start: 2018
  6. CAPTOPRIL. [Concomitant]
     Active Substance: CAPTOPRIL
     Indication: PRODUCT USED FOR UNKNOWN INDICATION
     Dosage: 0.3 GRAM, EVERY 12 HRS
     Route: 065
     Dates: start: 2018
  7. SPIRONOLACTONE. [Concomitant]
     Active Substance: SPIRONOLACTONE
     Indication: PRODUCT USED FOR UNKNOWN INDICATION
     Dosage: 15 GRAM, EVERY 12 HRS
     Route: 065
     Dates: start: 2018

REACTIONS (2)
  - Endocarditis [Recovered/Resolved]
  - Candida infection [Recovered/Resolved]

NARRATIVE: CASE EVENT DATE: 20181011
